FAERS Safety Report 15075361 (Version 1)
Quarter: 2018Q2

REPORT INFORMATION
  Report Type: Spontaneous
  Country: US (occurrence: US)
  Receive Date: 20180627
  Receipt Date: 20180627
  Transmission Date: 20180711
  Serious: Yes (Hospitalization, Other)
  Sender: FDA-Public Use
  Company Number: US-SAOL THERAPEUTICS-2018SAO00030

PATIENT
  Age: 30 Year
  Sex: Male
  Weight: 55 kg

DRUGS (11)
  1. LIORESAL [Suspect]
     Active Substance: BACLOFEN
     Dosage: 807.6 ?G, \DAY
     Route: 037
     Dates: start: 20180104
  2. LIORESAL [Suspect]
     Active Substance: BACLOFEN
     Indication: MUSCLE SPASTICITY
  3. LIORESAL [Suspect]
     Active Substance: BACLOFEN
     Indication: CEREBRAL PALSY
     Route: 037
  4. BACLOFEN. [Concomitant]
     Active Substance: BACLOFEN
     Dosage: 20 MG, 2X/DAY
     Route: 048
  5. LIORESAL [Suspect]
     Active Substance: BACLOFEN
     Indication: CEREBRAL PALSY
     Dosage: UNK
     Dates: start: 2004, end: 20171028
  6. ZITHROMAX [Concomitant]
     Active Substance: AZITHROMYCIN DIHYDRATE
     Dosage: UNK
  7. LIORESAL [Suspect]
     Active Substance: BACLOFEN
     Dosage: 847.6 ?G, \DAY
     Route: 037
     Dates: start: 20171228, end: 20180104
  8. TAMIFLU [Concomitant]
     Active Substance: OSELTAMIVIR PHOSPHATE
     Dosage: 75 MG, UNK
  9. PROTONIX [Concomitant]
     Active Substance: PANTOPRAZOLE SODIUM
     Dosage: 40 MG, 1X/DAY
  10. LIORESAL [Suspect]
     Active Substance: BACLOFEN
     Indication: MUSCLE SPASTICITY
     Dosage: 847.6 ?G, \DAY
     Route: 037
     Dates: start: 20171028, end: 20171219
  11. LIORESAL [Suspect]
     Active Substance: BACLOFEN
     Dosage: 806.4 ?G, \DAY
     Route: 037
     Dates: start: 20171219, end: 20171228

REACTIONS (18)
  - Dyskinesia [Recovering/Resolving]
  - Complication associated with device [Recovered/Resolved]
  - Drug withdrawal syndrome [Unknown]
  - Overdose [Unknown]
  - Tachycardia [Recovering/Resolving]
  - Confusional state [Recovering/Resolving]
  - Pain [Unknown]
  - Therapy non-responder [Unknown]
  - Insomnia [Unknown]
  - Somnolence [Unknown]
  - Posturing [Unknown]
  - Hypertension [Recovering/Resolving]
  - Hypotonia [Unknown]
  - Urinary incontinence [Unknown]
  - Hypertonia [Unknown]
  - Sedation [Recovering/Resolving]
  - Tremor [Recovering/Resolving]
  - Muscle contracture [Unknown]

NARRATIVE: CASE EVENT DATE: 20171223
